FAERS Safety Report 7350445-5 (Version None)
Quarter: 2011Q1

REPORT INFORMATION
  Report Type: 
  Country: None (occurrence: None)
  Receive Date: 20110309
  Receipt Date: 20110309
  Transmission Date: 20110831
  Serious: Yes (Hospitalization)
  Sender: FDA-Public Use
  Company Number: None

PATIENT
  Age: 64 Year
  Sex: Male
  Weight: 89.8122 kg

DRUGS (11)
  1. OMEPRAZOLE [Concomitant]
  2. COLACE [Concomitant]
  3. BENAZEPRIL [Concomitant]
  4. MULTI-VITAMIN [Concomitant]
  5. GLIMEPIRIDE [Concomitant]
  6. DECITABINE [Suspect]
     Indication: MYELODYSPLASTIC SYNDROME
     Dosage: .2MG/KG SQ
     Dates: start: 20100907
  7. LEVAQUIN [Concomitant]
  8. ROBUVASTATIN [Concomitant]
  9. METFORMIN HCL [Concomitant]
  10. TESSALON [Concomitant]
  11. ACETAMINOPHEN [Concomitant]

REACTIONS (4)
  - RHINORRHOEA [None]
  - FEBRILE NEUTROPENIA [None]
  - PRODUCTIVE COUGH [None]
  - SPUTUM DISCOLOURED [None]
